FAERS Safety Report 15845798 (Version 2)
Quarter: 2025Q3

REPORT INFORMATION
  Report Type: Spontaneous
  Country: EU (occurrence: EU)
  Receive Date: 20190120
  Receipt Date: 20250723
  Transmission Date: 20251020
  Serious: Yes (Hospitalization, Other)
  Sender: AUROBINDO
  Company Number: EU-AUROBINDO-AUR-APL-2019-001592

PATIENT
  Age: 63 Year
  Sex: Male

DRUGS (18)
  1. CEFTRIAXONE [Suspect]
     Active Substance: CEFTRIAXONE
     Indication: Keratitis fungal
     Route: 042
  2. CEFTRIAXONE [Suspect]
     Active Substance: CEFTRIAXONE
     Indication: Complications of transplant surgery
     Route: 065
  3. VORICONAZOLE [Suspect]
     Active Substance: VORICONAZOLE
     Indication: Keratitis fungal
     Route: 047
  4. VORICONAZOLE [Suspect]
     Active Substance: VORICONAZOLE
     Route: 065
  5. VORICONAZOLE [Suspect]
     Active Substance: VORICONAZOLE
     Route: 062
  6. VORICONAZOLE [Suspect]
     Active Substance: VORICONAZOLE
     Route: 057
  7. VORICONAZOLE [Suspect]
     Active Substance: VORICONAZOLE
     Dosage: 6 MILLIGRAM/KILOGRAM, TWO TIMES A DAY
     Route: 065
  8. ATROPINE [Suspect]
     Active Substance: ATROPINE
     Indication: Keratitis fungal
     Route: 065
  9. ATROPINE [Suspect]
     Active Substance: ATROPINE
     Indication: Complications of transplant surgery
     Route: 065
  10. TETRACYCLINE [Suspect]
     Active Substance: TETRACYCLINE
     Indication: Keratitis fungal
     Route: 065
  11. TETRACYCLINE [Suspect]
     Active Substance: TETRACYCLINE
     Route: 065
  12. CHLORAMPHENICOL [Concomitant]
     Active Substance: CHLORAMPHENICOL
     Indication: Product used for unknown indication
     Route: 065
  13. NETILMICIN [Concomitant]
     Active Substance: NETILMICIN
     Indication: Keratitis fungal
     Route: 065
  14. NETILMICIN [Concomitant]
     Active Substance: NETILMICIN
     Indication: Complications of transplant surgery
  15. PREDNISONE [Concomitant]
     Active Substance: PREDNISONE
     Indication: Product used for unknown indication
     Route: 065
  16. PREDNISONE [Concomitant]
     Active Substance: PREDNISONE
     Route: 065
  17. DEXAMETHASONE [Concomitant]
     Active Substance: DEXAMETHASONE
     Indication: Complications of transplant surgery
     Route: 065
  18. DEXAMETHASONE [Concomitant]
     Active Substance: DEXAMETHASONE
     Indication: Keratitis fungal

REACTIONS (3)
  - Complications of transplant surgery [Unknown]
  - Keratitis fungal [Unknown]
  - Drug resistance [Unknown]

NARRATIVE: CASE EVENT DATE: 20150101
